FAERS Safety Report 6955768-7 (Version None)
Quarter: 2010Q3

REPORT INFORMATION
  Report Type: 
  Country: None (occurrence: None)
  Receive Date: 20100830
  Receipt Date: 20100728
  Transmission Date: 20110219
  Serious: Yes (Other)
  Sender: FDA-Public Use
  Company Number: US-AMGEN-QUU419015

PATIENT
  Sex: Female
  Weight: 49.9 kg

DRUGS (12)
  1. NPLATE [Suspect]
     Indication: IDIOPATHIC THROMBOCYTOPENIC PURPURA
     Route: 058
     Dates: start: 20091006, end: 20091103
  2. COUMADIN [Concomitant]
  3. AMBIEN [Concomitant]
  4. CARDIZEM [Concomitant]
  5. TRICOR [Concomitant]
  6. PROTONIX [Concomitant]
  7. CELLCEPT [Concomitant]
  8. DIOVAN [Concomitant]
  9. PREDNISONE [Concomitant]
  10. FOSRENOL [Concomitant]
  11. FOLIC ACID [Concomitant]
  12. TEGRETOL [Concomitant]

REACTIONS (1)
  - DRUG INEFFECTIVE [None]
